FAERS Safety Report 12090322 (Version 1)
Quarter: 2016Q1

REPORT INFORMATION
  Report Type: Spontaneous
  Country: US (occurrence: US)
  Receive Date: 20160218
  Receipt Date: 20160218
  Transmission Date: 20160526
  Serious: No
  Sender: FDA-Public Use
  Company Number: US-WATSON-2016-00175

PATIENT
  Sex: Female

DRUGS (3)
  1. CLONIDINE. [Suspect]
     Active Substance: CLONIDINE
     Indication: POSTURAL ORTHOSTATIC TACHYCARDIA SYNDROME
     Dosage: 0.3 MG, DAILY
     Route: 062
     Dates: start: 2015, end: 201601
  2. CLONIDINE. [Suspect]
     Active Substance: CLONIDINE
     Indication: POSTURAL ORTHOSTATIC TACHYCARDIA SYNDROME
     Dosage: 0.2 MG, DAILY
     Route: 062
     Dates: start: 2015, end: 2015
  3. CLONIDINE. [Suspect]
     Active Substance: CLONIDINE
     Indication: POSTURAL ORTHOSTATIC TACHYCARDIA SYNDROME
     Dosage: 0.1 MG, DAILY
     Route: 062
     Dates: start: 2015, end: 2015

REACTIONS (3)
  - Rash [Recovered/Resolved]
  - Product use issue [Unknown]
  - Pruritus [Recovered/Resolved]

NARRATIVE: CASE EVENT DATE: 2015
